FAERS Safety Report 6997557-3 (Version None)
Quarter: 2010Q3

REPORT INFORMATION
  Report Type: 
  Country: None (occurrence: None)
  Receive Date: 20100918
  Receipt Date: 20091028
  Transmission Date: 20110219
  Serious: No
  Sender: FDA-Public Use
  Company Number: US-WYE-H11930109

PATIENT
  Sex: Female

DRUGS (2)
  1. EFFEXOR [Suspect]
     Dosage: UNKNOWN
     Dates: end: 20091001
  2. PRISTIQ [Concomitant]
     Route: 048
     Dates: start: 20091026

REACTIONS (13)
  - ASTHENIA [None]
  - BLOOD PRESSURE INCREASED [None]
  - CONDITION AGGRAVATED [None]
  - DECREASED APPETITE [None]
  - DEPRESSION [None]
  - DIARRHOEA [None]
  - DIZZINESS [None]
  - DRUG WITHDRAWAL SYNDROME [None]
  - FATIGUE [None]
  - MOOD SWINGS [None]
  - NAUSEA [None]
  - SOMNOLENCE [None]
  - UNEVALUABLE EVENT [None]
